FAERS Safety Report 4311346-X (Version None)
Quarter: 2004Q1

REPORT INFORMATION
  Report Type: 
  Country: None (occurrence: None)
  Receive Date: 20040302
  Receipt Date: 20040119
  Transmission Date: 20041129
  Serious: No
  Sender: FDA-Public Use
  Company Number: 200327474BWH

PATIENT
  Age: 62 Year
  Sex: Male

DRUGS (7)
  1. LEVITRA [Suspect]
     Dosage: SEE IMAGE
     Route: 048
     Dates: start: 20031020
  2. LEVITRA [Suspect]
     Dosage: SEE IMAGE
     Route: 048
     Dates: start: 20031027
  3. LANOXIN [Concomitant]
  4. PREVACID [Concomitant]
  5. MONOPRIL [Concomitant]
  6. TRAZODONE HCL [Concomitant]
  7. GLIPIZIDE [Concomitant]

REACTIONS (1)
  - ERECTILE DYSFUNCTION [None]
